FAERS Safety Report 16674439 (Version 1)
Quarter: 2019Q3

REPORT INFORMATION
  Report Type: Spontaneous
  Country: US (occurrence: US)
  Receive Date: 20190806
  Receipt Date: 20190806
  Transmission Date: 20191004
  Serious: Yes (Other)
  Sender: FDA-Public Use
  Company Number: US-ASTRAZENECA-2018SF27237

PATIENT
  Age: 17905 Day
  Sex: Female
  Weight: 97.5 kg

DRUGS (24)
  1. PRILOSEC [Suspect]
     Active Substance: OMEPRAZOLE MAGNESIUM
     Indication: GASTROOESOPHAGEAL REFLUX DISEASE
     Dosage: GENERIC (20 MG TO 40 MG ONCE DAY)
     Route: 065
     Dates: start: 2012
  2. ALBUTEROL. [Concomitant]
     Active Substance: ALBUTEROL
     Indication: ASTHMA
  3. CLINDAMYCIN. [Concomitant]
     Active Substance: CLINDAMYCIN
  4. PANTOPRAZOLE [Suspect]
     Active Substance: PANTOPRAZOLE
     Indication: GASTROOESOPHAGEAL REFLUX DISEASE
     Route: 065
     Dates: start: 2013, end: 2014
  5. CODEINE [Concomitant]
     Active Substance: CODEINE
     Indication: PAIN
  6. ATENOLOL. [Concomitant]
     Active Substance: ATENOLOL
     Indication: HYPERTENSION
  7. SIMVASTATIN. [Concomitant]
     Active Substance: SIMVASTATIN
     Indication: BLOOD CHOLESTEROL INCREASED
  8. LYRICA [Concomitant]
     Active Substance: PREGABALIN
     Indication: NEURALGIA
  9. AMOXICILLIN. [Concomitant]
     Active Substance: AMOXICILLIN
     Indication: INFECTION
  10. CEPHALEXIN. [Concomitant]
     Active Substance: CEPHALEXIN
     Indication: INFECTION
  11. DIAZEPAM. [Concomitant]
     Active Substance: DIAZEPAM
     Indication: ANXIETY
  12. AMLODIPINE [Concomitant]
     Active Substance: AMLODIPINE BESYLATE
     Indication: HYPERTENSION
  13. PREVACID [Suspect]
     Active Substance: LANSOPRAZOLE
     Indication: GASTROOESOPHAGEAL REFLUX DISEASE
     Route: 065
     Dates: start: 1999, end: 2011
  14. PRILOSEC [Suspect]
     Active Substance: OMEPRAZOLE MAGNESIUM
     Indication: GASTROOESOPHAGEAL REFLUX DISEASE
     Route: 048
     Dates: start: 1999, end: 2008
  15. METOPROLOL. [Concomitant]
     Active Substance: METOPROLOL
     Indication: HYPERTENSION
  16. FENOFIBRATE. [Concomitant]
     Active Substance: FENOFIBRATE
     Indication: BLOOD CHOLESTEROL INCREASED
  17. NEXIUM [Suspect]
     Active Substance: ESOMEPRAZOLE MAGNESIUM
     Indication: GASTROOESOPHAGEAL REFLUX DISEASE
     Route: 048
     Dates: start: 19950101, end: 20131231
  18. PREVACID [Suspect]
     Active Substance: LANSOPRAZOLE
     Indication: GASTROOESOPHAGEAL REFLUX DISEASE
     Dosage: GENERIC
     Route: 065
     Dates: start: 2009, end: 2012
  19. AMOXICILLIN. [Concomitant]
     Active Substance: AMOXICILLIN
     Indication: INFECTION
  20. OXYCODONE [Concomitant]
     Active Substance: OXYCODONE
     Indication: PAIN
  21. FLUCONAZOLE. [Concomitant]
     Active Substance: FLUCONAZOLE
  22. HYDROCODONE [Concomitant]
     Active Substance: HYDROCODONE
  23. NEXIUM [Suspect]
     Active Substance: ESOMEPRAZOLE MAGNESIUM
     Indication: GASTROOESOPHAGEAL REFLUX DISEASE
     Dosage: ONCE A DAY
     Route: 048
     Dates: start: 2011, end: 2014
  24. LEVOFLOXACIN. [Concomitant]
     Active Substance: LEVOFLOXACIN
     Indication: INFECTION

REACTIONS (5)
  - Renal failure [Unknown]
  - End stage renal disease [Not Recovered/Not Resolved]
  - Nephrogenic anaemia [Unknown]
  - Chronic kidney disease [Not Recovered/Not Resolved]
  - Hyperparathyroidism secondary [Recovering/Resolving]

NARRATIVE: CASE EVENT DATE: 20180425
